FAERS Safety Report 7474683-6 (Version None)
Quarter: 2011Q1

REPORT INFORMATION
  Report Type: 
  Country: None (occurrence: None)
  Receive Date: 20110302
  Receipt Date: 20100802
  Transmission Date: 20110831
  Serious: Yes (Other)
  Sender: FDA-Public Use
  Company Number: 163-21880-10041873

PATIENT
  Age: 61 Year
  Sex: Male

DRUGS (3)
  1. REVLIMID [Suspect]
     Indication: MULTIPLE MYELOMA
     Dosage: 5 MG, DAILY FOR 28 DAYS, PO; 15 MG, Q MONDAY, WEDNESDAY, AND FRIDAY, PO; 5 MG, DAILY FOR 28 DAYS, PO
     Route: 048
     Dates: start: 20100419, end: 20100604
  2. REVLIMID [Suspect]
     Indication: MULTIPLE MYELOMA
     Dosage: 5 MG, DAILY FOR 28 DAYS, PO; 15 MG, Q MONDAY, WEDNESDAY, AND FRIDAY, PO; 5 MG, DAILY FOR 28 DAYS, PO
     Route: 048
     Dates: start: 20080701, end: 20100401
  3. REVLIMID [Suspect]
     Indication: MULTIPLE MYELOMA
     Dosage: 5 MG, DAILY FOR 28 DAYS, PO; 15 MG, Q MONDAY, WEDNESDAY, AND FRIDAY, PO; 5 MG, DAILY FOR 28 DAYS, PO
     Route: 048
     Dates: start: 20100601

REACTIONS (6)
  - RENAL FAILURE [None]
  - NEUTROPHIL COUNT DECREASED [None]
  - PLATELET COUNT DECREASED [None]
  - UPPER RESPIRATORY TRACT INFECTION [None]
  - PLEURAL EFFUSION [None]
  - RESTLESS LEGS SYNDROME [None]
